FAERS Safety Report 17076148 (Version 1)
Quarter: 2019Q4

REPORT INFORMATION
  Report Type: Report from Study
  Country: US (occurrence: US)
  Receive Date: 20191126
  Receipt Date: 20191126
  Transmission Date: 20200122
  Serious: Yes (Other)
  Sender: FDA-Public Use
  Company Number: US-ASTELLAS-2019US039629

PATIENT
  Age: 83 Year
  Sex: Male

DRUGS (1)
  1. ISAVUCONAZOLE [Suspect]
     Active Substance: ISAVUCONAZOLE
     Indication: PNEUMONIA FUNGAL
     Route: 048
     Dates: start: 20170404, end: 20190930

REACTIONS (8)
  - Aspartate aminotransferase abnormal [Recovered/Resolved]
  - Diarrhoea [Recovered/Resolved]
  - Cyst rupture [Not Recovered/Not Resolved]
  - Blood alkaline phosphatase increased [Recovering/Resolving]
  - Dizziness [Recovered/Resolved]
  - Ossicle disorder [Not Recovered/Not Resolved]
  - Alanine aminotransferase increased [Recovered/Resolved]
  - Ear discomfort [Not Recovered/Not Resolved]

NARRATIVE: CASE EVENT DATE: 201704
